FAERS Safety Report 10557232 (Version 3)
Quarter: 2017Q3

REPORT INFORMATION
  Report Type: Report from Study
  Country: None (occurrence: BR)
  Receive Date: 20141031
  Receipt Date: 20170815
  Transmission Date: 20171127
  Serious: Yes (Hospitalization, Other)
  Sender: FDA-Public Use
  Company Number: BR-ABBVIE-14P-020-1302489-00

PATIENT
  Age: 36 Year
  Sex: Male
  Weight: 60 kg

DRUGS (11)
  1. PHENYTOIN. [Concomitant]
     Active Substance: PHENYTOIN
     Indication: NERVOUS SYSTEM DISORDER
     Dosage: DURING HOSPITALIZATION
     Route: 048
  2. PHENYTOIN. [Concomitant]
     Active Substance: PHENYTOIN
     Indication: SEIZURE
  3. QUETIAPINE. [Concomitant]
     Active Substance: QUETIAPINE
     Indication: SLEEP DISORDER
  4. DEPAKOTE ER [Suspect]
     Active Substance: DIVALPROEX SODIUM
     Indication: ANXIOLYTIC THERAPY
     Route: 048
     Dates: start: 200812
  5. DEPAKOTE ER [Suspect]
     Active Substance: DIVALPROEX SODIUM
     Indication: AFFECTIVE DISORDER
  6. HALOPERIDOL. [Concomitant]
     Active Substance: HALOPERIDOL
     Indication: AGGRESSION
     Route: 048
  7. DEPAKOTE ER [Suspect]
     Active Substance: DIVALPROEX SODIUM
     Indication: AGGRESSION
     Dosage: DURING HOSPITALIZATION; DAILY DOSE: 1500 MG
     Route: 048
     Dates: start: 201409
  8. DEPAKOTE ER [Suspect]
     Active Substance: DIVALPROEX SODIUM
     Indication: MENTAL DISORDER
     Dosage: DAILY DOSE: 2 TABLETS; MORNING/NIGHT
     Route: 065
  9. DEPAKOTE ER [Suspect]
     Active Substance: DIVALPROEX SODIUM
     Indication: SEIZURE
  10. NEOZINE [Concomitant]
     Active Substance: LEVOMEPROMAZINE
     Indication: AGGRESSION
     Dosage: DAILY DOSE: UNKNOWN; (WHEN NECESSARY /SPORADICALLY) WHEN PATIENT IS VERY MUCH AGGRESSIVE
     Route: 048
  11. QUETIAPINE. [Concomitant]
     Active Substance: QUETIAPINE
     Indication: AGGRESSION

REACTIONS (6)
  - Obsessive-compulsive disorder [Unknown]
  - Aggression [Recovered/Resolved]
  - Agitation [Recovered/Resolved]
  - Product use issue [Unknown]
  - Nervous system disorder [Recovered/Resolved]
  - Off label use [Unknown]

NARRATIVE: CASE EVENT DATE: 200812
